FAERS Safety Report 5129891-6 (Version None)
Quarter: 2006Q4

REPORT INFORMATION
  Report Type: 
  Country: None (occurrence: None)
  Receive Date: 20061012
  Receipt Date: 20060926
  Transmission Date: 20070319
  Serious: Yes (Hospitalization, Other)
  Sender: FDA-Public Use
  Company Number: 229766

PATIENT
  Age: 60 Year
  Sex: Female
  Weight: 43.8 kg

DRUGS (1)
  1. HERCEPTIN [Suspect]
     Indication: BREAST CANCER
     Dosage: 6MG/KG, Q3W, INTRAVENOUS; 8 MG/KG
     Route: 042
     Dates: start: 20050127, end: 20060825

REACTIONS (1)
  - GASTRIC CANCER [None]
